FAERS Safety Report 7497018-1 (Version None)
Quarter: 2011Q2

REPORT INFORMATION
  Report Type: 
  Country: None (occurrence: None)
  Receive Date: 20110523
  Receipt Date: 20110520
  Transmission Date: 20111010
  Serious: Yes (Other)
  Sender: FDA-Public Use
  Company Number: DE-ABBOTT-11P-062-0727330-00

PATIENT
  Sex: Female

DRUGS (3)
  1. FOLIC ACID [Concomitant]
     Indication: PRODUCT USED FOR UNKNOWN INDICATION
  2. KEPPRA [Suspect]
     Indication: EPILEPSY
  3. VALPROATE SODIUM [Suspect]
     Indication: EPILEPSY

REACTIONS (1)
  - ABORTION INDUCED [None]
